FAERS Safety Report 9325516 (Version 1)
Quarter: 2013Q2

REPORT INFORMATION
  Report Type: Spontaneous
  Country: US (occurrence: None)
  Receive Date: 20130531
  Receipt Date: 20130531
  Transmission Date: 20140414
  Serious: Yes (Hospitalization)
  Sender: FDA-Public Use
  Company Number: None

PATIENT
  Age: 73 Year
  Sex: Male

DRUGS (2)
  1. CLOPIDOGREL [Suspect]
     Dosage: 75MG  DAILY  PO
     Route: 048
  2. RIVAROXABAN [Suspect]
     Dosage: 15MG DAILY PO
     Route: 048

REACTIONS (1)
  - Gastrointestinal haemorrhage [None]
